FAERS Safety Report 4598420-8 (Version None)
Quarter: 2005Q1

REPORT INFORMATION
  Report Type: 
  Country: None (occurrence: None)
  Receive Date: 20050301
  Receipt Date: 20050301
  Transmission Date: 20050727
  Serious: Yes (Hospitalization)
  Sender: FDA-Public Use
  Company Number: None

PATIENT
  Sex: Male
  Weight: 86.1834 kg

DRUGS (10)
  1. IRINOTECAN HCL [Suspect]
     Indication: SMALL CELL LUNG CANCER STAGE UNSPECIFIED
     Dosage: 104 MG IV-D1 AND 8
     Route: 042
     Dates: start: 20050214
  2. IRINOTECAN HCL [Suspect]
     Indication: SMALL CELL LUNG CANCER STAGE UNSPECIFIED
     Dosage: 104 MG IV-D1 AND 8
     Route: 042
     Dates: start: 20050221
  3. CISPLATIN [Suspect]
     Indication: SMALL CELL LUNG CANCER STAGE UNSPECIFIED
     Dosage: 41.6 MG D1 AND 8
     Dates: start: 20050214
  4. CISPLATIN [Suspect]
     Indication: SMALL CELL LUNG CANCER STAGE UNSPECIFIED
     Dosage: 41.6 MG D1 AND 8
     Dates: start: 20050221
  5. ETOPOSIDE [Suspect]
     Dosage: 100 MG BID PO
     Route: 048
     Dates: start: 20050216, end: 20050223
  6. IMODIUM [Concomitant]
  7. DECADRON [Concomitant]
  8. CRESTOR [Concomitant]
  9. EFFEXOR [Concomitant]
  10. PERCOCET [Concomitant]

REACTIONS (5)
  - ATELECTASIS [None]
  - DIARRHOEA [None]
  - DRUG TOXICITY [None]
  - NEUTROPENIA [None]
  - PNEUMONIA [None]
